FAERS Safety Report 25170814 (Version 1)
Quarter: 2025Q2

REPORT INFORMATION
  Report Type: Spontaneous
  Country: GB (occurrence: GB)
  Receive Date: 20250408
  Receipt Date: 20250408
  Transmission Date: 20250716
  Serious: Yes (Other)
  Sender: EMD SERONO INC
  Company Number: GB-MHRA-TPP22559939C11413346YC1743253069199

PATIENT
  Age: 52 Year
  Sex: Male
  Weight: 144 kg

DRUGS (14)
  1. METFORMIN [Suspect]
     Active Substance: METFORMIN HYDROCHLORIDE
     Indication: Ill-defined disorder
     Dates: start: 20240404
  2. MOUNJARO [Suspect]
     Active Substance: TIRZEPATIDE
     Indication: Ill-defined disorder
  3. HYDROCORTISONE\MICONAZOLE NITRATE [Concomitant]
     Active Substance: HYDROCORTISONE\MICONAZOLE NITRATE
     Indication: Ill-defined disorder
     Dates: start: 20250203, end: 20250204
  4. SILDENAFIL [Concomitant]
     Active Substance: SILDENAFIL
     Indication: Ill-defined disorder
  5. PREGABALIN [Concomitant]
     Active Substance: PREGABALIN
     Indication: Ill-defined disorder
     Dosage: TOTAL 300MG.
     Dates: start: 20231215
  6. FINASTERIDE [Concomitant]
     Active Substance: FINASTERIDE
     Indication: Ill-defined disorder
     Dates: start: 20231219
  7. GLICLAZIDE [Concomitant]
     Active Substance: GLICLAZIDE
     Indication: Ill-defined disorder
     Dosage: TAKE TWO TABLETS WITH BREAKFAST AND ONE WITH EVENING.
     Dates: start: 20240206, end: 20250317
  8. TAMSULOSIN HYDROCHLORIDE [Concomitant]
     Active Substance: TAMSULOSIN HYDROCHLORIDE
     Indication: Ill-defined disorder
     Dates: start: 20240226
  9. ATORVASTATIN [Concomitant]
     Active Substance: ATORVASTATIN
     Indication: Ill-defined disorder
     Dosage: FORM-TPP YC - PLEASE RECLASSIFY, TAKE ONE DAILY
     Dates: start: 20240404
  10. CLOBETASOL PROPIONATE [Concomitant]
     Active Substance: CLOBETASOL PROPIONATE
     Indication: Ill-defined disorder
  11. ESOMEPRAZOLE [Concomitant]
     Active Substance: ESOMEPRAZOLE
     Indication: Ill-defined disorder
     Dosage: ONE THREE TIMES A DAY UPTO MAX 80MG DAILY, RED
     Dates: start: 20240404
  12. RAMIPRIL [Concomitant]
     Active Substance: RAMIPRIL
     Indication: Ill-defined disorder
     Dates: start: 20240404
  13. TRAMADOL [Concomitant]
     Active Substance: TRAMADOL
     Indication: Pain
  14. ACETAMINOPHEN\CODEINE PHOSPHATE [Concomitant]
     Active Substance: ACETAMINOPHEN\CODEINE PHOSPHATE
     Indication: Ill-defined disorder

REACTIONS (2)
  - Hypoglycaemia [Recovered/Resolved]
  - Drug interaction [Unknown]

NARRATIVE: CASE EVENT DATE: 20250317
